FAERS Safety Report 9186944 (Version 1)
Quarter: 2013Q1

REPORT INFORMATION
  Report Type: Spontaneous
  Country: US (occurrence: US)
  Receive Date: 20130325
  Receipt Date: 20130325
  Transmission Date: 20140127
  Serious: Yes (Hospitalization)
  Sender: FDA-Public Use
  Company Number: US-BAYER-2013-035893

PATIENT
  Age: 24 Year
  Sex: Female
  Weight: 94.33 kg

DRUGS (18)
  1. YAZ [Suspect]
  2. YASMIN [Suspect]
  3. THIOLA [Concomitant]
     Dosage: 600 MG, BID
     Route: 048
  4. CAPTOPRIL [Concomitant]
     Dosage: 75 MG, BID
     Route: 048
  5. UROCIT-K [Concomitant]
     Dosage: 400 MG, BID
     Route: 048
  6. HYDROCODONE W/APAP [Concomitant]
     Indication: PAIN
     Dosage: 10MG/500MG,1-2 TABS EVERY 4-6 HOURS
     Route: 048
  7. PROMETHEGAN [Concomitant]
     Dosage: 25 MG SUPPOSITORYTAKE ? EVERY 4-6 HOURS AS NEEDED.
     Route: 054
  8. CIPROFLOXACIN [Concomitant]
     Dosage: 1 DF, BID
     Route: 048
  9. MEPROZINE [Concomitant]
     Dosage: 50MG/ 25MG TAKE 1 CAPSULE EVERY 6 HOURS AS NEEDED
     Route: 048
  10. OXYCODONE/APAP [Concomitant]
     Dosage: 5 MG-325  TABLETS. TAKE 1-2 TABLETS EVERY 4-6 HOURS
     Route: 048
  11. URIMAR-T [HYOSCYAM,METHENAM,METHYLTHION,PHENYL SALICYL,NA+ PHOS MO [Concomitant]
     Dosage: TAKE 1 THREE TIMES A DAY FOR 7 DAYS
     Route: 048
  12. LEVAQUIN [Concomitant]
     Dosage: 500 MG, UNK
  13. NITROFURANTOIN [Concomitant]
     Dosage: TAKE 1 CAPSULE, 100 MG, BID
     Route: 048
  14. MONOMACK [Concomitant]
     Dosage: 100 MG, BID
     Route: 048
  15. DOC-Q-LACE [Concomitant]
     Dosage: TAKE 1, 100 MG, BID
     Route: 048
  16. KETOROLAC [Concomitant]
     Dosage: 10 MG, TID
     Route: 048
  17. AZITHROMYCIN [Concomitant]
     Dosage: 250 MG- TAKE 2 AT ONCE AND THEN 1 FOR 4 DAYS.
  18. ZOSYN [Concomitant]

REACTIONS (1)
  - Pulmonary embolism [None]
